FAERS Safety Report 5060930-7 (Version None)
Quarter: 2006Q2

REPORT INFORMATION
  Report Type: 
  Country: None (occurrence: None)
  Receive Date: 20060630
  Receipt Date: 20060314
  Transmission Date: 20061013
  Serious: No
  Sender: FDA-Public Use
  Company Number: US171691

PATIENT
  Age: 60 Year
  Sex: Male
  Weight: 103 kg

DRUGS (6)
  1. SENSIPAR [Suspect]
     Indication: HYPERPARATHYROIDISM SECONDARY
     Dosage: 60 MG, 1 IN 1 DAYS, PO
     Route: 048
     Dates: start: 20051005, end: 20060208
  2. ATORVASTATIN CALCIUM [Concomitant]
  3. NICOTINIC ACID [Concomitant]
  4. PHOSLO [Concomitant]
  5. SEVELAMER HCL [Concomitant]
  6. LANTHANUM CARBONATE [Concomitant]

REACTIONS (1)
  - MYALGIA [None]
